FAERS Safety Report 9828675 (Version 1)
Quarter: 2014Q1

REPORT INFORMATION
  Report Type: Spontaneous
  Country: US (occurrence: US)
  Receive Date: 20140117
  Receipt Date: 20140117
  Transmission Date: 20141002
  Serious: Yes (Hospitalization, Other)
  Sender: FDA-Public Use
  Company Number: US-ELI_LILLY_AND_COMPANY-US201401002236

PATIENT
  Sex: Female

DRUGS (8)
  1. INSULIN HUMAN [Suspect]
     Indication: TYPE 2 DIABETES MELLITUS
     Dosage: UNK
     Route: 065
     Dates: start: 2010
  2. ADVAIR [Concomitant]
  3. MONTELUKAST [Concomitant]
  4. FLUTICASONE [Concomitant]
  5. SPIRONOLACTONE [Concomitant]
  6. LORATADINE [Concomitant]
  7. ATENOLOL [Concomitant]
  8. OMEPRAZOLE [Concomitant]

REACTIONS (4)
  - Malignant melanoma [Unknown]
  - Asthma [Unknown]
  - Incorrect dosage administered [Unknown]
  - Blood glucose decreased [Unknown]
